FAERS Safety Report 16386259 (Version 1)
Quarter: 2019Q2

REPORT INFORMATION
  Report Type: Report from Study
  Country: BR (occurrence: BR)
  Receive Date: 20190603
  Receipt Date: 20190603
  Transmission Date: 20190711
  Serious: Yes (Hospitalization, Other)
  Sender: FDA-Public Use
  Company Number: PHHY2019BR125147

PATIENT
  Age: 39 Year
  Sex: Female

DRUGS (1)
  1. GILENYA [Suspect]
     Active Substance: FINGOLIMOD HYDROCHLORIDE
     Indication: PRODUCT USED FOR UNKNOWN INDICATION
     Dosage: UNK
     Route: 065
     Dates: start: 201811

REACTIONS (16)
  - Pain [Unknown]
  - Malaise [Unknown]
  - Asthenia [Unknown]
  - Platelet count decreased [Unknown]
  - Abdominal distension [Unknown]
  - Peripheral swelling [Unknown]
  - Liver function test abnormal [Unknown]
  - Mobility decreased [Unknown]
  - Disease recurrence [Unknown]
  - Migraine [Unknown]
  - Dengue fever [Unknown]
  - Weight increased [Unknown]
  - Dizziness [Unknown]
  - Exercise tolerance decreased [Unknown]
  - Headache [Unknown]
  - Swelling face [Unknown]

NARRATIVE: CASE EVENT DATE: 201904
